FAERS Safety Report 6070736-8 (Version None)
Quarter: 2009Q1

REPORT INFORMATION
  Report Type: 
  Country: None (occurrence: None)
  Receive Date: 20090209
  Receipt Date: 20090128
  Transmission Date: 20090719
  Serious: Yes (Other)
  Sender: FDA-Public Use
  Company Number: GR-ROCHE-611493

PATIENT
  Sex: Female

DRUGS (8)
  1. XENICAL [Suspect]
     Indication: DRUG USE FOR UNKNOWN INDICATION
     Dosage: FORM: HARD CAPS
     Route: 048
     Dates: start: 20081001
  2. PROPAFENONE HYDROCHLORIDE [Concomitant]
     Dosage: FORM: F.C. TABS
     Route: 048
  3. PLAVIX [Concomitant]
     Dosage: FORM: F.C. TABS
     Route: 048
  4. LOPRESSOR [Concomitant]
     Dosage: FORM: F.C. TABS
     Route: 048
  5. ACTOS [Concomitant]
     Route: 048
  6. DIAMICRON [Concomitant]
     Route: 048
  7. EZETROL [Concomitant]
     Route: 048
  8. LEXOTANIL [Concomitant]
     Route: 048

REACTIONS (2)
  - DYSHIDROSIS [None]
  - PYREXIA [None]
